FAERS Safety Report 6684531-X (Version None)
Quarter: 2010Q2

REPORT INFORMATION
  Report Type: 
  Country: None (occurrence: None)
  Receive Date: 20100416
  Receipt Date: 20100406
  Transmission Date: 20101027
  Serious: Yes (Other)
  Sender: FDA-Public Use
  Company Number: US-PFIZER INC-2010025371

PATIENT
  Sex: Male
  Weight: 54.014 kg

DRUGS (6)
  1. GLUCOTROL [Suspect]
     Indication: DIABETES MELLITUS
     Dosage: 10 MG, 2X/DAY
     Dates: start: 19840101
  2. GLUCOTROL [Suspect]
     Dosage: 5 MG, 4X/DAY
  3. LIPITOR [Suspect]
     Indication: BLOOD CHOLESTEROL INCREASED
     Dosage: 20 MG, 1X/DAY
     Dates: start: 19970101
  4. PROCARDIA [Suspect]
     Indication: HYPERTENSION
     Dates: start: 19970101
  5. ATENOLOL [Concomitant]
     Dosage: UNK
  6. ACCUPRIL [Concomitant]
     Dosage: UNK

REACTIONS (3)
  - DECUBITUS ULCER [None]
  - LEFT VENTRICULAR DYSFUNCTION [None]
  - PNEUMONIA [None]
